FAERS Safety Report 24677959 (Version 1)
Quarter: 2024Q4

REPORT INFORMATION
  Report Type: Spontaneous
  Country: US (occurrence: US)
  Receive Date: 20241129
  Receipt Date: 20241129
  Transmission Date: 20250115
  Serious: No
  Sender: HETERO
  Company Number: US-HETERO-HET2024US04305

PATIENT
  Sex: Male
  Weight: 125.1 kg

DRUGS (2)
  1. VALSARTAN [Suspect]
     Active Substance: VALSARTAN
     Indication: Hypertension
     Dosage: 160 MILLIGRAM, BID
     Route: 048
     Dates: start: 20241112
  2. VALSARTAN [Suspect]
     Active Substance: VALSARTAN
     Dosage: UNK (OVERDOSE)
     Route: 048

REACTIONS (1)
  - Overdose [Unknown]
